FAERS Safety Report 5764516-8 (Version None)
Quarter: 2008Q2

REPORT INFORMATION
  Report Type: 
  Country: None (occurrence: None)
  Receive Date: 20080610
  Receipt Date: 20080529
  Transmission Date: 20081010
  Serious: Yes (Other)
  Sender: FDA-Public Use
  Company Number: US-PFIZER INC-2008033013

PATIENT
  Sex: Female

DRUGS (5)
  1. LYRICA [Suspect]
     Indication: FIBROMYALGIA
     Route: 048
  2. ROZEREM [Concomitant]
  3. XANAX [Concomitant]
  4. SOMA [Concomitant]
  5. OXYCODONE HCL [Concomitant]

REACTIONS (1)
  - GRAND MAL CONVULSION [None]
